FAERS Safety Report 15895696 (Version 1)
Quarter: 2019Q1

REPORT INFORMATION
  Report Type: Spontaneous
  Country: US (occurrence: US)
  Receive Date: 20190131
  Receipt Date: 20190131
  Transmission Date: 20190417
  Serious: No
  Sender: FDA-Public Use
  Company Number: PHEH2019US004049

PATIENT
  Age: 40 Year
  Sex: Female

DRUGS (2)
  1. IMATINIB. [Suspect]
     Active Substance: IMATINIB MESYLATE
     Indication: PRODUCT USED FOR UNKNOWN INDICATION
     Route: 065
  2. PONATINIB [Suspect]
     Active Substance: PONATINIB
     Indication: MYELOID LEUKAEMIA
     Dosage: 30 MG, QD
     Route: 048
     Dates: start: 20181119, end: 20181124

REACTIONS (7)
  - Chest pain [Unknown]
  - Product use in unapproved indication [Unknown]
  - Dizziness [Unknown]
  - Blood pressure increased [Unknown]
  - Abdominal pain [Unknown]
  - Diarrhoea [None]
  - Influenza [Unknown]

NARRATIVE: CASE EVENT DATE: 20181124
